FAERS Safety Report 11237331 (Version 1)
Quarter: 2015Q3

REPORT INFORMATION
  Report Type: Spontaneous
  Country: US (occurrence: US)
  Receive Date: 20150703
  Receipt Date: 20150703
  Transmission Date: 20151125
  Serious: No
  Sender: FDA-Public Use
  Company Number: US-ASTRAZENECA-2015SE62494

PATIENT
  Sex: Female

DRUGS (1)
  1. SYMBICORT [Suspect]
     Active Substance: BUDESONIDE\FORMOTEROL FUMARATE DIHYDRATE
     Indication: COUGH
     Dosage: 160/4.5 MCG, 2 PUFFS BID
     Route: 055

REACTIONS (6)
  - Malaise [Unknown]
  - Drug ineffective [Unknown]
  - Off label use [Unknown]
  - Cough [Unknown]
  - Intentional product misuse [Unknown]
  - Product use issue [Unknown]
